FAERS Safety Report 4284081-4 (Version None)
Quarter: 2004Q1

REPORT INFORMATION
  Report Type: 
  Country: None (occurrence: None)
  Receive Date: 20040130
  Receipt Date: 20040121
  Transmission Date: 20041129
  Serious: Yes (Other)
  Sender: FDA-Public Use
  Company Number: US-JNJFOC-20030903061

PATIENT
  Age: 65 Year
  Sex: Female
  Weight: 58.9676 kg

DRUGS (4)
  1. REOPRO [Suspect]
     Indication: MYOCARDIAL ISCHAEMIA
     Dosage: INTRAVENOUS
     Route: 042
     Dates: start: 20030908
  2. ASPIRIN [Concomitant]
  3. HEPARIN [Concomitant]
  4. PLAVIX [Concomitant]

REACTIONS (6)
  - CARDIOMEGALY [None]
  - CHOLECYSTECTOMY [None]
  - GASTRIC HAEMORRHAGE [None]
  - HAEMATOCHEZIA [None]
  - LEFT VENTRICULAR FAILURE [None]
  - SMALL INTESTINAL HAEMORRHAGE [None]
